FAERS Safety Report 5945221-1 (Version None)
Quarter: 2008Q4

REPORT INFORMATION
  Report Type: 
  Country: None (occurrence: None)
  Receive Date: 20081021
  Receipt Date: 20070928
  Transmission Date: 20090506
  Serious: Yes (Other)
  Sender: FDA-Public Use
  Company Number: US-WYE-H00437107

PATIENT
  Sex: Female

DRUGS (2)
  1. PREMARIN [Suspect]
  2. PREDNISONE [Concomitant]

REACTIONS (1)
  - MYOCARDIAL INFARCTION [None]
